FAERS Safety Report 9168197 (Version 2)
Quarter: 2013Q2

REPORT INFORMATION
  Report Type: Spontaneous
  Country: US (occurrence: US)
  Receive Date: 20130318
  Receipt Date: 20130515
  Transmission Date: 20140414
  Serious: Yes (Hospitalization)
  Sender: FDA-Public Use
  Company Number: US-ELI_LILLY_AND_COMPANY-US201105002024

PATIENT
  Age: 59 Year
  Sex: Female

DRUGS (4)
  1. FORTEO [Suspect]
     Indication: BONE DENSITY ABNORMAL
     Dosage: UNK, UNKNOWN
     Dates: start: 201104
  2. FORTEO [Suspect]
     Dosage: UNK, UNKNOWN
  3. VITAMIN D3 [Concomitant]
     Dosage: UNK, QD
  4. LOVASTATIN [Concomitant]

REACTIONS (3)
  - Myocardial infarction [Recovered/Resolved]
  - Injection site anaesthesia [Unknown]
  - Implant site bruising [Unknown]
